FAERS Safety Report 24555179 (Version 2)
Quarter: 2024Q4

REPORT INFORMATION
  Report Type: Spontaneous
  Country: FR (occurrence: FR)
  Receive Date: 20241028
  Receipt Date: 20241108
  Transmission Date: 20250115
  Serious: Yes (Hospitalization)
  Sender: RANBAXY
  Company Number: FR-SUN PHARMACEUTICAL INDUSTRIES LTD-2024RR-475563

PATIENT
  Age: 25 Year
  Sex: Male

DRUGS (2)
  1. QUETIAPINE [Suspect]
     Active Substance: QUETIAPINE
     Indication: Poisoning deliberate
     Dosage: 30 TABLETS OF 50 MG
     Route: 048
     Dates: start: 20240414, end: 20240414
  2. VALPROMIDE [Suspect]
     Active Substance: VALPROMIDE
     Indication: Poisoning deliberate
     Dosage: 70 TABLETS OF 300 MG
     Route: 048
     Dates: start: 20240414, end: 20240414

REACTIONS (4)
  - Poisoning deliberate [Recovered/Resolved]
  - Coma [Recovered/Resolved]
  - Hyperammonaemia [Recovered/Resolved]
  - Acidosis [Recovered/Resolved]

NARRATIVE: CASE EVENT DATE: 20240414
